FAERS Safety Report 20762997 (Version 1)
Quarter: 2022Q2

REPORT INFORMATION
  Report Type: Spontaneous
  Country: GB (occurrence: GB)
  Receive Date: 20220428
  Receipt Date: 20220428
  Transmission Date: 20220721
  Serious: Yes (Hospitalization)
  Sender: FDA-Public Use
  Company Number: GB-EXELIXIS-CABO-22051336

PATIENT
  Age: 71 Year
  Sex: Female

DRUGS (3)
  1. CABOMETYX [Suspect]
     Active Substance: CABOZANTINIB S-MALATE
     Indication: Renal cell carcinoma
     Dosage: UNK
     Dates: start: 20210416, end: 20210517
  2. CABOMETYX [Suspect]
     Active Substance: CABOZANTINIB S-MALATE
     Dosage: UNK
     Dates: end: 20210615
  3. CABOMETYX [Suspect]
     Active Substance: CABOZANTINIB S-MALATE
     Dosage: UNK (LOWER DOSE)
     Dates: start: 20210625, end: 20210712

REACTIONS (18)
  - Guillain-Barre syndrome [Recovering/Resolving]
  - Cytomegalovirus test positive [Recovered/Resolved]
  - Spinal osteoarthritis [Recovering/Resolving]
  - Oral candidiasis [Recovering/Resolving]
  - Intervertebral disc protrusion [Recovering/Resolving]
  - Quality of life decreased [Recovering/Resolving]
  - Weight increased [Recovering/Resolving]
  - Joint swelling [Recovering/Resolving]
  - Mucosal inflammation [Recovering/Resolving]
  - Stomatitis [Recovering/Resolving]
  - Epistaxis [Recovering/Resolving]
  - Palmar-plantar erythrodysaesthesia syndrome [Recovering/Resolving]
  - Metastases to adrenals [Recovering/Resolving]
  - Metastases to lung [Recovering/Resolving]
  - Metastases to central nervous system [Recovering/Resolving]
  - Metastases to liver [Recovering/Resolving]
  - Malignant neoplasm progression [Recovering/Resolving]
  - Blood sodium decreased [Recovering/Resolving]

NARRATIVE: CASE EVENT DATE: 20210401
